FAERS Safety Report 4981933-4 (Version None)
Quarter: 2006Q2

REPORT INFORMATION
  Report Type: 
  Country: None (occurrence: None)
  Receive Date: 20060425
  Receipt Date: 20050930
  Transmission Date: 20061013
  Serious: Yes (Disabling)
  Sender: FDA-Public Use
  Company Number: US-MERCK-0510USA01511

PATIENT
  Age: 32 Year
  Sex: Female
  Weight: 77 kg

DRUGS (2)
  1. VIOXX [Suspect]
     Indication: MUSCLE SPASMS
     Route: 048
     Dates: start: 20030520, end: 20030521
  2. VIOXX [Suspect]
     Indication: PAIN
     Route: 048
     Dates: start: 20030520, end: 20030521

REACTIONS (2)
  - ENDOMETRIAL ABLATION [None]
  - EYE DISORDER [None]
